FAERS Safety Report 4512350-9 (Version None)
Quarter: 2004Q4

REPORT INFORMATION
  Report Type: 
  Country: None (occurrence: None)
  Receive Date: 20041123
  Receipt Date: 20041110
  Transmission Date: 20050328
  Serious: Yes (Hospitalization)
  Sender: FDA-Public Use
  Company Number: 2004AP05751

PATIENT
  Age: 71 Year
  Sex: Female
  Weight: 70 kg

DRUGS (3)
  1. NEXIUM [Suspect]
     Indication: OESOPHAGEAL DISORDER
     Dosage: 20 MG DAILY, PO
     Route: 048
     Dates: start: 20040114, end: 20040830
  2. LIPITOR [Suspect]
     Indication: METABOLIC DISORDER
     Dosage: 10 MG DAILY, PO
     Route: 048
     Dates: end: 20040705
  3. MODURETIC 5-50 [Concomitant]

REACTIONS (4)
  - ASTHENIA [None]
  - DIFFICULTY IN WALKING [None]
  - MYOPATHY [None]
  - VIRAL INFECTION [None]
